FAERS Safety Report 5370835-X (Version None)
Quarter: 2007Q2

REPORT INFORMATION
  Report Type: 
  Country: None (occurrence: None)
  Receive Date: 20070626
  Receipt Date: 20070625
  Transmission Date: 20071010
  Serious: Yes (Hospitalization, Other)
  Sender: FDA-Public Use
  Company Number: US-BRISTOL-MYERS SQUIBB COMPANY-13141668

PATIENT
  Age: 55 Year
  Sex: Male

DRUGS (9)
  1. DASATINIB [Suspect]
     Indication: NON-SMALL CELL LUNG CANCER
     Route: 048
     Dates: start: 20050822
  2. CEFEPIME [Concomitant]
     Route: 042
  3. DARBEPOETIN ALFA [Concomitant]
     Route: 058
     Dates: start: 20051007
  4. REGLAN [Concomitant]
  5. NAPROXEN [Concomitant]
     Indication: BACK PAIN
  6. ALBUTEROL [Concomitant]
  7. TYLENOL [Concomitant]
  8. PROTONIX [Concomitant]
     Route: 042
  9. ZOFRAN [Concomitant]
     Indication: NAUSEA
     Route: 042

REACTIONS (5)
  - ANAEMIA [None]
  - DYSPNOEA [None]
  - PLEURAL EFFUSION [None]
  - RASH [None]
  - THROMBOCYTOPENIA [None]
